FAERS Safety Report 16945575 (Version 1)
Quarter: 2019Q4

REPORT INFORMATION
  Report Type: Spontaneous
  Country: US (occurrence: US)
  Receive Date: 20191021
  Receipt Date: 20191021
  Transmission Date: 20200122
  Serious: Yes (Other)
  Sender: FDA-Public Use
  Company Number: None

PATIENT
  Age: 37 Year
  Sex: Male
  Weight: 76.05 kg

DRUGS (1)
  1. IVACAFTOR/TEZACAFTOR [Suspect]
     Active Substance: IVACAFTOR\TEZACAFTOR
     Indication: DEPRESSION
     Dosage: 100/150 MG IN AM, 150 MG AT NIGHT TWICE A DAY ORAL
     Route: 048
     Dates: start: 20180313, end: 20181201

REACTIONS (4)
  - Depression [None]
  - Mood altered [None]
  - Suicidal ideation [None]
  - Binge drinking [None]

NARRATIVE: CASE EVENT DATE: 20180619
